FAERS Safety Report 23862619 (Version 2)
Quarter: 2024Q2

REPORT INFORMATION
  Report Type: Spontaneous
  Country: IT (occurrence: IT)
  Receive Date: 20240516
  Receipt Date: 20240521
  Transmission Date: 20240716
  Serious: Yes (Death, Life-Threatening)
  Sender: FDA-Public Use
  Company Number: IT-MLMSERVICE-20240506-PI050659-00271-1

PATIENT
  Age: 7 Year
  Sex: Female

DRUGS (38)
  1. VINCRISTINE SULFATE [Suspect]
     Active Substance: VINCRISTINE SULFATE
     Indication: T-cell type acute leukaemia
     Dosage: UNK
     Dates: start: 201707
  2. VINCRISTINE SULFATE [Suspect]
     Active Substance: VINCRISTINE SULFATE
     Indication: Metastases to central nervous system
  3. METHYLPREDNISOLONE ACETATE [Suspect]
     Active Substance: METHYLPREDNISOLONE ACETATE
     Indication: Diarrhoea
     Dosage: 1 MG/KG, WEEKLY BOLUS OF 0.5 MG/KG OF METHYLPREDNISOLONE TWICE A WEEK
     Dates: start: 201811
  4. METHYLPREDNISOLONE ACETATE [Suspect]
     Active Substance: METHYLPREDNISOLONE ACETATE
     Indication: Vomiting
  5. METHYLPREDNISOLONE ACETATE [Suspect]
     Active Substance: METHYLPREDNISOLONE ACETATE
     Indication: Weight decreased
  6. METHYLPREDNISOLONE ACETATE [Suspect]
     Active Substance: METHYLPREDNISOLONE ACETATE
     Indication: Abdominal pain
  7. METHOTREXATE SODIUM [Suspect]
     Active Substance: METHOTREXATE SODIUM
     Indication: Leukaemia recurrent
     Dosage: INDUCTION
     Route: 037
     Dates: start: 201707
  8. METHOTREXATE SODIUM [Suspect]
     Active Substance: METHOTREXATE SODIUM
     Indication: T-cell type acute leukaemia
     Dosage: CONSOLIDATION PHASE, BASED ON HIGH-DOSE METHOTREXATE
     Route: 037
     Dates: start: 2017
  9. METHOTREXATE SODIUM [Suspect]
     Active Substance: METHOTREXATE SODIUM
     Indication: Metastases to central nervous system
     Dosage: SHORT-TERM
     Dates: start: 2018
  10. METHOTREXATE SODIUM [Suspect]
     Active Substance: METHOTREXATE SODIUM
     Indication: Prophylaxis against graft versus host disease
  11. DOXORUBICIN HYDROCHLORIDE [Suspect]
     Active Substance: DOXORUBICIN HYDROCHLORIDE
     Indication: Leukaemia recurrent
     Dosage: UNK
  12. DOXORUBICIN HYDROCHLORIDE [Suspect]
     Active Substance: DOXORUBICIN HYDROCHLORIDE
     Indication: Metastases to central nervous system
  13. DOXORUBICIN HYDROCHLORIDE [Suspect]
     Active Substance: DOXORUBICIN HYDROCHLORIDE
     Indication: T-cell type acute leukaemia
  14. CYTARABINE [Suspect]
     Active Substance: CYTARABINE
     Indication: Leukaemia recurrent
     Dosage: UNK
     Route: 037
     Dates: start: 201707
  15. CYTARABINE [Suspect]
     Active Substance: CYTARABINE
     Indication: Metastases to central nervous system
  16. CYTARABINE [Suspect]
     Active Substance: CYTARABINE
     Indication: T-cell type acute leukaemia
  17. DAUNORUBICIN HYDROCHLORIDE [Suspect]
     Active Substance: DAUNORUBICIN HYDROCHLORIDE
     Indication: Metastases to central nervous system
     Dosage: UNK
     Dates: start: 201707
  18. DAUNORUBICIN HYDROCHLORIDE [Suspect]
     Active Substance: DAUNORUBICIN HYDROCHLORIDE
     Indication: T-cell type acute leukaemia
  19. DEXAMETHASONE SODIUM PHOSPHATE [Suspect]
     Active Substance: DEXAMETHASONE PHOSPHATE\DEXAMETHASONE SODIUM PHOSPHATE
     Indication: Metastases to central nervous system
     Dosage: UNK
     Dates: start: 201707
  20. DEXAMETHASONE SODIUM PHOSPHATE [Suspect]
     Active Substance: DEXAMETHASONE PHOSPHATE\DEXAMETHASONE SODIUM PHOSPHATE
     Indication: T-cell type acute leukaemia
  21. TACROLIMUS [Suspect]
     Active Substance: TACROLIMUS
     Indication: Intestinal atony
     Dosage: UNK
     Dates: start: 2018
  22. FLUDARABINE [Suspect]
     Active Substance: FLUDARABINE PHOSPHATE
     Indication: Leukaemia recurrent
     Dosage: UNK
  23. FLUDARABINE [Suspect]
     Active Substance: FLUDARABINE PHOSPHATE
     Indication: T-cell type acute leukaemia
  24. FLUDARABINE [Suspect]
     Active Substance: FLUDARABINE PHOSPHATE
     Indication: Metastases to central nervous system
  25. ANTI-THYMOCYTE GLOBULIN (RABBIT) NOS [Suspect]
     Active Substance: LAPINE T-LYMPHOCYTE IMMUNE GLOBULIN
     Indication: Bone marrow conditioning regimen
     Dosage: 240 MG/M2, 1X/DAY
     Dates: start: 201804
  26. CYCLOSPORINE [Suspect]
     Active Substance: CYCLOSPORINE
     Indication: Prophylaxis against graft versus host disease
     Dosage: UNK
     Dates: start: 2018
  27. PREDNISONE [Suspect]
     Active Substance: PREDNISONE
     Indication: Graft versus host disease in skin
     Dosage: 1 MG/KG, 1X/DAY SYSTEMIC
     Dates: start: 2018, end: 2018
  28. PREDNISONE [Suspect]
     Active Substance: PREDNISONE
     Dosage: 5 MG/KG, 1X/DAY, MAXIMUM DOSAGE OF 5 MG/KG/DIE
     Dates: start: 201811
  29. PREDNISONE [Suspect]
     Active Substance: PREDNISONE
     Dosage: 1 MG/KG, 1X/DAY
     Route: 061
     Dates: start: 2018, end: 2018
  30. PREDNISONE [Suspect]
     Active Substance: PREDNISONE
     Indication: T-cell type acute leukaemia
     Dosage: UNK
     Route: 037
     Dates: start: 201707
  31. PREDNISONE [Suspect]
     Active Substance: PREDNISONE
     Indication: Metastases to central nervous system
  32. PREDNISONE [Suspect]
     Active Substance: PREDNISONE
     Indication: Leukaemia recurrent
  33. MYCOPHENOLATE MOFETIL [Suspect]
     Active Substance: MYCOPHENOLATE MOFETIL
     Indication: Intestinal atony
     Dosage: UNK
     Dates: start: 2018
  34. CYCLOPHOSPHAMIDE [Suspect]
     Active Substance: CYCLOPHOSPHAMIDE
     Indication: T-cell type acute leukaemia
     Dosage: UNK
     Dates: start: 201707
  35. CYCLOPHOSPHAMIDE [Suspect]
     Active Substance: CYCLOPHOSPHAMIDE
     Indication: Metastases to central nervous system
     Dosage: 60 MG/M2, 1X/DAY
     Dates: start: 201804
  36. CYCLOPHOSPHAMIDE [Suspect]
     Active Substance: CYCLOPHOSPHAMIDE
     Indication: Bone marrow conditioning regimen
  37. BECLOMETHASONE DIPROPIONATE [Suspect]
     Active Substance: BECLOMETHASONE DIPROPIONATE
     Indication: Graft versus host disease in gastrointestinal tract
     Dosage: MAXIMUM DOSAGE OF 4 MG/KG/DIE
     Dates: start: 201811
  38. BECLOMETHASONE DIPROPIONATE [Suspect]
     Active Substance: BECLOMETHASONE DIPROPIONATE
     Indication: Bone marrow conditioning regimen
     Dosage: UNK
     Dates: start: 2018, end: 2018

REACTIONS (10)
  - Pneumatosis intestinalis [Fatal]
  - Seizure [Fatal]
  - Trismus [Fatal]
  - Cardiopulmonary failure [Fatal]
  - Pulmonary oedema [Fatal]
  - Haemostasis [Fatal]
  - Multiple organ dysfunction syndrome [Fatal]
  - Pulmonary embolism [Fatal]
  - Cardiac arrest [Fatal]
  - Portal vein embolism [Fatal]

NARRATIVE: CASE EVENT DATE: 20181101
